FAERS Safety Report 25840353 (Version 1)
Quarter: 2025Q3

REPORT INFORMATION
  Report Type: Spontaneous
  Country: JP (occurrence: JP)
  Receive Date: 20250924
  Receipt Date: 20250924
  Transmission Date: 20251020
  Serious: Yes (Other)
  Sender: AMGEN
  Company Number: JP-AMGEN-JPNSP2025185715

PATIENT

DRUGS (18)
  1. CARFILZOMIB [Suspect]
     Active Substance: CARFILZOMIB
     Indication: Plasma cell myeloma refractory
     Route: 065
  2. FILGRASTIM [Suspect]
     Active Substance: FILGRASTIM
     Indication: Product used for unknown indication
     Route: 065
  3. TALQUETAMAB [Suspect]
     Active Substance: TALQUETAMAB
     Indication: Plasma cell myeloma refractory
     Route: 058
  4. BORTEZOMIB [Suspect]
     Active Substance: BORTEZOMIB
     Indication: Plasma cell myeloma refractory
     Route: 065
  5. IXAZOMIB [Suspect]
     Active Substance: IXAZOMIB
     Indication: Plasma cell myeloma refractory
     Route: 065
  6. THALIDOMIDE [Suspect]
     Active Substance: THALIDOMIDE
     Indication: Plasma cell myeloma refractory
     Route: 065
  7. LENALIDOMIDE [Suspect]
     Active Substance: LENALIDOMIDE
     Indication: Plasma cell myeloma refractory
     Route: 065
  8. POMALIDOMIDE [Suspect]
     Active Substance: POMALIDOMIDE
     Indication: Plasma cell myeloma refractory
     Route: 065
  9. ISATUXIMAB [Suspect]
     Active Substance: ISATUXIMAB
     Indication: Plasma cell myeloma refractory
     Route: 065
  10. TOLODODEKIN ALFA [Suspect]
     Active Substance: TOLODODEKIN ALFA
     Indication: Plasma cell myeloma refractory
     Route: 065
  11. ACYCLOVIR [Concomitant]
     Active Substance: ACYCLOVIR
     Indication: Prophylaxis
  12. SULFAMETHOXAZOLE\TRIMETHOPRIM [Concomitant]
     Active Substance: SULFAMETHOXAZOLE\TRIMETHOPRIM
     Indication: Prophylaxis
     Route: 065
  13. LEVOFLOXACIN [Concomitant]
     Active Substance: LEVOFLOXACIN
     Indication: Prophylaxis
     Route: 065
  14. LENOGRASTIM [Concomitant]
     Active Substance: LENOGRASTIM
     Indication: Prophylaxis
     Route: 065
  15. BENFOTIAMINE [Concomitant]
     Active Substance: BENFOTIAMINE
     Route: 065
  16. CYANOCOBALAMIN [Concomitant]
     Active Substance: CYANOCOBALAMIN
     Route: 065
  17. PYRIDOXINE HYDROCHLORIDE [Concomitant]
     Active Substance: PYRIDOXINE HYDROCHLORIDE
     Route: 065
  18. ZINC ACETATE [Concomitant]
     Active Substance: ZINC ACETATE
     Route: 065

REACTIONS (84)
  - Neutropenia [Unknown]
  - Lymphopenia [Unknown]
  - Anaemia [Unknown]
  - Leukopenia [Unknown]
  - Thrombocytopenia [Unknown]
  - Gastroenteritis [Unknown]
  - Cytokine release syndrome [Recovered/Resolved]
  - Dermatitis bullous [Unknown]
  - Pneumonia [Unknown]
  - Plasma cell myeloma [Unknown]
  - Hypogammaglobulinaemia [Unknown]
  - Hypercalcaemia of malignancy [Unknown]
  - Adverse event [Unknown]
  - Hypoxia [Unknown]
  - Upper respiratory tract infection [Unknown]
  - COVID-19 [Unknown]
  - Conjunctival haemorrhage [Unknown]
  - Weight decreased [Unknown]
  - Pyrexia [Unknown]
  - Injection site erythema [Unknown]
  - Malaise [Unknown]
  - Injection site warmth [Unknown]
  - Hypogeusia [Unknown]
  - Dysgeusia [Unknown]
  - Dyskinesia [Unknown]
  - Taste disorder [Unknown]
  - Diarrhoea [Unknown]
  - Nausea [Unknown]
  - Dysphagia [Unknown]
  - Vomiting [Unknown]
  - Abdominal pain [Unknown]
  - Aphthous ulcer [Unknown]
  - Constipation [Unknown]
  - Dry mouth [Unknown]
  - Gastrooesophageal reflux disease [Unknown]
  - Irritable bowel syndrome [Unknown]
  - Stomatitis [Unknown]
  - Alopecia [Unknown]
  - Skin exfoliation [Unknown]
  - Eczema [Unknown]
  - Nail disorder [Unknown]
  - Dry skin [Unknown]
  - Eczema nummular [Unknown]
  - Erythema [Unknown]
  - Hand dermatitis [Unknown]
  - Nail discolouration [Unknown]
  - Onychomadesis [Unknown]
  - Pruritus [Unknown]
  - Rash [Unknown]
  - Rash maculo-papular [Unknown]
  - Dermatophytosis of nail [Unknown]
  - Herpes zoster [Unknown]
  - Nasopharyngitis [Unknown]
  - Otitis media [Unknown]
  - Tinea pedis [Unknown]
  - Hyperglycaemia [Unknown]
  - Hypozincaemia [Unknown]
  - Decreased appetite [Unknown]
  - Hyperammonaemia [Unknown]
  - Arthralgia [Unknown]
  - Joint range of motion decreased [Unknown]
  - Muscular weakness [Unknown]
  - Myalgia [Unknown]
  - Neck pain [Unknown]
  - Spinal deformity [Unknown]
  - Tinnitus [Unknown]
  - Vertigo [Unknown]
  - Alanine aminotransferase increased [Unknown]
  - Aspartate aminotransferase increased [Unknown]
  - Lipase increased [Unknown]
  - Cancer pain [Unknown]
  - Skin papilloma [Unknown]
  - Tumour associated fever [Unknown]
  - Hiccups [Unknown]
  - Oropharyngeal pain [Unknown]
  - Rhinorrhoea [Unknown]
  - Diplopia [Unknown]
  - Dry eye [Unknown]
  - Nail avulsion [Unknown]
  - Mental disorder [Unknown]
  - Insomnia [Unknown]
  - Anxiety [Unknown]
  - Bundle branch block right [Unknown]
  - Prostatic obstruction [Unknown]
